FAERS Safety Report 8485089-5 (Version None)
Quarter: 2012Q3

REPORT INFORMATION
  Report Type: 
  Country: None (occurrence: None)
  Receive Date: 20120703
  Receipt Date: 20120620
  Transmission Date: 20120928
  Serious: Yes (Disabling, Other)
  Sender: FDA-Public Use
  Company Number: JP-UCBSA-059859

PATIENT
  Sex: Male

DRUGS (2)
  1. XYZAL [Suspect]
     Indication: PRURITUS
     Route: 048
     Dates: start: 20101217, end: 20120611
  2. KINDAVATE [Concomitant]
     Route: 061
     Dates: start: 20110601

REACTIONS (3)
  - VISUAL ACUITY REDUCED [None]
  - VISION BLURRED [None]
  - CORNEAL OPACITY [None]
